FAERS Safety Report 20188657 (Version 4)
Quarter: 2024Q4

REPORT INFORMATION
  Report Type: Spontaneous
  Country: IL (occurrence: IL)
  Receive Date: 20211215
  Receipt Date: 20241103
  Transmission Date: 20250114
  Serious: Yes (Other)
  Sender: BRISTOL-MYERS SQUIBB COMPANY
  Company Number: IL-BRISTOL-MYERS SQUIBB COMPANY-BMS-2021-130885

PATIENT
  Age: 62 Year
  Sex: Male

DRUGS (2)
  1. NIVOLUMAB [Suspect]
     Active Substance: NIVOLUMAB
     Indication: Malignant melanoma
     Dosage: 1 MILLIGRAM/KILOGRAM
     Dates: start: 20210616, end: 202203
  2. IPILIMUMAB [Suspect]
     Active Substance: IPILIMUMAB
     Indication: Malignant melanoma
     Dosage: 3 MILLIGRAM/KILOGRAM
     Dates: start: 20210616

REACTIONS (7)
  - Hepatitis [Unknown]
  - Type 1 diabetes mellitus [Unknown]
  - Diabetic ketoacidosis [Unknown]
  - Pyrexia [Unknown]
  - Dermatitis [Unknown]
  - Vitiligo [Unknown]
  - Arthritis [Unknown]
